FAERS Safety Report 18488363 (Version 1)
Quarter: 2020Q4

REPORT INFORMATION
  Report Type: Spontaneous
  Country: CN (occurrence: CN)
  Receive Date: 20201110
  Receipt Date: 20201110
  Transmission Date: 20210114
  Serious: Yes (Other)
  Sender: FDA-Public Use
  Company Number: CN-BAXTER-2020BAX022630

PATIENT
  Age: 24 Year
  Sex: Male
  Weight: 55 kg

DRUGS (7)
  1. ENDOXAN [Suspect]
     Active Substance: CYCLOPHOSPHAMIDE
     Indication: THYMOMA MALIGNANT RECURRENT
     Dosage: DAY 1
     Route: 041
     Dates: start: 20201015, end: 20201015
  2. UROMITEXAN [Suspect]
     Active Substance: MESNA
     Indication: PROPHYLAXIS
     Route: 065
  3. ENDOXAN [Suspect]
     Active Substance: CYCLOPHOSPHAMIDE
     Dosage: DOSE REINTRODUCED
     Route: 041
     Dates: start: 202010
  4. AIDASHENG [Suspect]
     Active Substance: EPIRUBICIN HYDROCHLORIDE
     Indication: THYMOMA MALIGNANT RECURRENT
     Dosage: DAY1
     Route: 041
     Dates: start: 20201015, end: 20201015
  5. UROMITEXAN [Suspect]
     Active Substance: MESNA
     Indication: CYSTITIS HAEMORRHAGIC
  6. AIDASHENG [Suspect]
     Active Substance: EPIRUBICIN HYDROCHLORIDE
     Dosage: DOSE REINTRODUCED
     Route: 041
     Dates: start: 202010
  7. PREDNISONE. [Suspect]
     Active Substance: PREDNISONE
     Indication: THYMOMA MALIGNANT RECURRENT
     Dosage: DAY 1-5
     Route: 065
     Dates: start: 20201015, end: 20201019

REACTIONS (5)
  - Vomiting [Recovering/Resolving]
  - Decreased appetite [Recovering/Resolving]
  - Myelosuppression [Unknown]
  - Fatigue [Unknown]
  - Nausea [Recovering/Resolving]

NARRATIVE: CASE EVENT DATE: 20201015
